FAERS Safety Report 23381786 (Version 1)
Quarter: 2024Q1

REPORT INFORMATION
  Report Type: Spontaneous
  Country: US (occurrence: None)
  Receive Date: 20240108
  Receipt Date: 20240108
  Transmission Date: 20240410
  Serious: Yes (Other)
  Sender: FDA-Public Use
  Company Number: None

PATIENT
  Age: 65 Year
  Sex: Female

DRUGS (1)
  1. CAPECITABINE [Suspect]
     Active Substance: CAPECITABINE
     Dates: start: 20230926, end: 20231204

REACTIONS (2)
  - Platelet count abnormal [None]
  - Blood potassium abnormal [None]

NARRATIVE: CASE EVENT DATE: 20231204
